FAERS Safety Report 4475183-8 (Version None)
Quarter: 2004Q4

REPORT INFORMATION
  Report Type: 
  Country: None (occurrence: None)
  Receive Date: 20041015
  Receipt Date: 20040806
  Transmission Date: 20050328
  Serious: Yes (Death, Hospitalization)
  Sender: FDA-Public Use
  Company Number: FR-BRISTOL-MYERS SQUIBB COMPANY-12663696

PATIENT
  Age: 41 Year
  Sex: Female
  Weight: 51 kg

DRUGS (5)
  1. TAXOL [Suspect]
     Indication: BREAST CANCER
     Dosage: 7TH COURSE
     Route: 042
     Dates: start: 20040723, end: 20040723
  2. HERCEPTIN [Suspect]
     Indication: BREAST CANCER
     Dosage: 7TH COURSE
     Route: 042
     Dates: start: 20040723, end: 20040723
  3. POLARAMINE [Concomitant]
  4. SOLU-MEDROL [Concomitant]
  5. ZOPHREN [Concomitant]

REACTIONS (8)
  - BLOOD CREATININE INCREASED [None]
  - BLOOD LACTATE DEHYDROGENASE INCREASED [None]
  - BLOOD POTASSIUM DECREASED [None]
  - DISSEMINATED INTRAVASCULAR COAGULATION [None]
  - GAMMA-GLUTAMYLTRANSFERASE INCREASED [None]
  - HAEMATOMA [None]
  - HAEMOGLOBIN DECREASED [None]
  - LEUKOPENIA [None]
